FAERS Safety Report 12037045 (Version 2)
Quarter: 2016Q1

REPORT INFORMATION
  Report Type: Spontaneous
  Country: US (occurrence: US)
  Receive Date: 20160208
  Receipt Date: 20160304
  Transmission Date: 20160526
  Serious: No
  Sender: FDA-Public Use
  Company Number: US-BEH-2016058394

PATIENT
  Age: 64 Year
  Sex: Female
  Weight: 85 kg

DRUGS (21)
  1. FLUNISOLIDE. [Concomitant]
     Active Substance: FLUNISOLIDE
  2. BUDESONIDE. [Concomitant]
     Active Substance: BUDESONIDE
  3. CLARITIN [Concomitant]
     Active Substance: LORATADINE
  4. DHEA [Concomitant]
     Active Substance: PRASTERONE
  5. DIPHENHYDRAMINE. [Concomitant]
     Active Substance: DIPHENHYDRAMINE
  6. ASTEPRO [Concomitant]
     Active Substance: AZELASTINE HYDROCHLORIDE
  7. LIPITOR [Concomitant]
     Active Substance: ATORVASTATIN CALCIUM
  8. VITAMIN D [Concomitant]
     Active Substance: CHOLECALCIFEROL
  9. SKELAXIN [Concomitant]
     Active Substance: METAXALONE
  10. LEVSIN [Concomitant]
     Active Substance: HYOSCYAMINE SULFATE
  11. FISH OIL [Concomitant]
     Active Substance: FISH OIL
  12. EPIPEN [Concomitant]
     Active Substance: EPINEPHRINE
  13. LEVAQUIN [Concomitant]
     Active Substance: LEVOFLOXACIN
  14. PLAQUENIL [Concomitant]
     Active Substance: HYDROXYCHLOROQUINE SULFATE
  15. MUCINEX [Concomitant]
     Active Substance: GUAIFENESIN
  16. BACTRIM [Concomitant]
     Active Substance: SULFAMETHOXAZOLE\TRIMETHOPRIM
  17. BIAXIN [Concomitant]
     Active Substance: CLARITHROMYCIN
  18. ALBUTEROL. [Concomitant]
     Active Substance: ALBUTEROL
  19. SYMBICORT [Concomitant]
     Active Substance: BUDESONIDE\FORMOTEROL FUMARATE DIHYDRATE
  20. HIZENTRA [Suspect]
     Active Substance: HUMAN IMMUNOGLOBULIN G
     Indication: PRODUCT USED FOR UNKNOWN INDICATION
     Dosage: 10 MG 50 ML VIALS
     Route: 058
     Dates: start: 20130722
  21. GLUCOSAMINE [Concomitant]
     Active Substance: GLUCOSAMINE

REACTIONS (2)
  - Bronchitis [Unknown]
  - Cough [Recovering/Resolving]

NARRATIVE: CASE EVENT DATE: 20160122
